FAERS Safety Report 7200377-8 (Version None)
Quarter: 2010Q4

REPORT INFORMATION
  Report Type: 
  Country: None (occurrence: None)
  Receive Date: 20101228
  Receipt Date: 20101220
  Transmission Date: 20110411
  Serious: Yes (Death, Hospitalization, Other)
  Sender: FDA-Public Use
  Company Number: JP-BAYER-201012341BYL

PATIENT
  Sex: Male

DRUGS (18)
  1. NEXAVAR [Suspect]
     Dosage: 800 MG (DAILY DOSE), , ORAL
     Route: 048
     Dates: start: 20100406, end: 20100419
  2. NEXAVAR [Suspect]
     Dosage: 400 MG (DAILY DOSE), , ORAL
     Route: 048
     Dates: start: 20100420, end: 20100426
  3. NEXAVAR [Suspect]
     Dosage: 400 MG (DAILY DOSE), , ORAL
     Route: 048
     Dates: start: 20100430, end: 20100511
  4. CARDENALIN [Concomitant]
     Indication: HYPERTENSION
     Dosage: 1 MG (DAILY DOSE), , ORAL
     Route: 048
     Dates: end: 20100419
  5. CARDENALIN [Concomitant]
     Dosage: 2 MG (DAILY DOSE), , ORAL
     Route: 048
     Dates: start: 20100420
  6. CONIEL [Concomitant]
     Indication: HYPERTENSION
     Dosage: 4 MG (DAILY DOSE), , ORAL
     Route: 048
     Dates: end: 20100409
  7. CONIEL [Concomitant]
  8. ZYRTEC [Concomitant]
     Dosage: 10 MG (DAILY DOSE), , ORAL
     Route: 048
  9. OMEPRAL [Concomitant]
     Dosage: 20 MG (DAILY DOSE), , ORAL
     Route: 048
  10. DRUGS USED IN BENIGN PROSTATIC HYPERTROPHY [Concomitant]
     Dosage: 8 MG (DAILY DOSE), , ORAL
     Route: 048
  11. SHOUSAIKOTOU [Concomitant]
     Dosage: 3 DF (DAILY DOSE), , ORAL
     Route: 048
     Dates: end: 20100511
  12. NORVASC [Concomitant]
     Indication: HYPERTENSION
     Dosage: 5 MG (DAILY DOSE), , ORAL
     Route: 048
     Dates: start: 20100330, end: 20100409
  13. NORVASC [Concomitant]
     Dosage: 10 MG (DAILY DOSE), , ORAL
     Route: 048
     Dates: start: 20100410
  14. BLOPRESS [Concomitant]
     Indication: HYPERTENSION
     Dosage: 4 MG (DAILY DOSE), , ORAL
     Route: 048
     Dates: start: 20100401, end: 20100405
  15. BLOPRESS [Concomitant]
     Dosage: 8 MG (DAILY DOSE), , ORAL
     Route: 048
     Dates: start: 20100406, end: 20100408
  16. BLOPRESS [Concomitant]
     Dosage: 12 MG (DAILY DOSE), , ORAL
     Route: 048
     Dates: start: 20100406
  17. KERATINAMIN [Concomitant]
     Route: 061
     Dates: start: 20100405
  18. UNCODEABLE ^UNCLASSIFIABLE^ [Concomitant]
     Dosage: 8 MG (DAILY DOSE), , ORAL
     Route: 048

REACTIONS (4)
  - ACUTE HEPATIC FAILURE [None]
  - HYPERTENSION [None]
  - PALMAR-PLANTAR ERYTHRODYSAESTHESIA SYNDROME [None]
  - PYREXIA [None]
